FAERS Safety Report 9200524 (Version 2)
Quarter: 2013Q2

REPORT INFORMATION
  Report Type: Spontaneous
  Country: US (occurrence: US)
  Receive Date: 20130329
  Receipt Date: 20130423
  Transmission Date: 20140414
  Serious: Yes (Other)
  Sender: FDA-Public Use
  Company Number: US-ABBOTT-13P-163-1067509-00

PATIENT
  Sex: Male
  Weight: 68.1 kg

DRUGS (1)
  1. HUMIRA [Suspect]
     Indication: PSORIASIS

REACTIONS (3)
  - Limb crushing injury [Recovered/Resolved]
  - Accident at work [Recovered/Resolved]
  - Osteomyelitis [Recovered/Resolved]
